FAERS Safety Report 11216263 (Version 1)
Quarter: 2015Q2

REPORT INFORMATION
  Report Type: Spontaneous
  Country: US (occurrence: None)
  Receive Date: 20150623
  Receipt Date: 20150623
  Transmission Date: 20150821
  Serious: Yes (Other)
  Sender: FDA-Public Use
  Company Number: None

PATIENT
  Age: 27 Year
  Sex: Female
  Weight: 119 kg

DRUGS (1)
  1. SUBOXONE [Suspect]
     Active Substance: BUPRENORPHINE HYDROCHLORIDE\NALOXONE HYDROCHLORIDE
     Indication: DRUG DEPENDENCE
     Dosage: PO
     Route: 048
     Dates: start: 20130226, end: 20140202

REACTIONS (6)
  - Rash generalised [None]
  - Headache [None]
  - Flushing [None]
  - Swelling face [None]
  - Throat tightness [None]
  - Oedema mouth [None]

NARRATIVE: CASE EVENT DATE: 20140221
